FAERS Safety Report 4952955-4 (Version None)
Quarter: 2006Q1

REPORT INFORMATION
  Report Type: 
  Country: None (occurrence: None)
  Receive Date: 20060320
  Receipt Date: 20060306
  Transmission Date: 20060701
  Serious: Yes (Hospitalization, Disabling, Other)
  Sender: FDA-Public Use
  Company Number: 2005S1000109

PATIENT
  Age: 42 Year
  Sex: Female
  Weight: 92.3 kg

DRUGS (18)
  1. CUBICIN [Suspect]
     Indication: OSTEOMYELITIS
     Dosage: 380 MG Q24H IV
     Route: 042
     Dates: start: 20050510, end: 20050602
  2. CUBICIN [Suspect]
     Indication: STAPHYLOCOCCAL INFECTION
     Dosage: 380 MG Q24H IV
     Route: 042
     Dates: start: 20050510, end: 20050602
  3. CYCLOBENZAPRINE [Concomitant]
  4. OXYCODONE [Concomitant]
  5. VANCOMYCIN [Concomitant]
  6. CEFAZOLIN [Concomitant]
  7. RIFAMPIN [Concomitant]
  8. BUMETANIDE [Concomitant]
  9. ALBUTEROL [Concomitant]
  10. PREMARIN [Concomitant]
  11. AZMACORT [Concomitant]
  12. ENALAPRIL MALEATE [Concomitant]
  13. MONTELEUKAST [Concomitant]
  14. BUSPAR [Concomitant]
  15. DIPHENHYDRAMINE [Concomitant]
  16. CIMETIDINE [Concomitant]
  17. PROMETHAZINE [Concomitant]
  18. PREVACID [Concomitant]

REACTIONS (10)
  - C-REACTIVE PROTEIN INCREASED [None]
  - CREATINE PHOSPHOKINASE DECREASED [None]
  - ERYTHEMA [None]
  - HEADACHE [None]
  - HEPATIC ENZYME INCREASED [None]
  - NAUSEA [None]
  - PAPILLOEDEMA [None]
  - RED BLOOD CELL SEDIMENTATION RATE INCREASED [None]
  - VISUAL DISTURBANCE [None]
  - WHITE BLOOD CELL COUNT INCREASED [None]
